FAERS Safety Report 8821409 (Version 1)
Quarter: 2012Q4

REPORT INFORMATION
  Report Type: 
  Country: US (occurrence: US)
  Receive Date: 20121002
  Receipt Date: 20121002
  Transmission Date: 20130627
  Serious: Yes (Other)
  Sender: FDA-Public Use
  Company Number: US-MYLANLABS-2012S1018910

PATIENT
  Age: 59 Year
  Sex: Female
  Weight: 113.4 kg

DRUGS (10)
  1. OMEPRAZOLE DELAYED-RELEASE CAPSULES, USP [Suspect]
     Indication: GASTROOESOPHAGEAL REFLUX DISEASE
     Route: 048
     Dates: start: 20120828, end: 20120903
  2. INSULIN [Concomitant]
     Indication: DIABETES MELLITUS
     Route: 058
  3. SIMVASTATIN [Concomitant]
     Indication: BLOOD CHOLESTEROL INCREASED
     Route: 048
  4. LISINOPRIL [Concomitant]
     Indication: HYPERTENSION
     Route: 048
  5. ASA [Concomitant]
     Route: 048
  6. FISH OIL [Concomitant]
     Route: 048
  7. VITAMIN C [Concomitant]
     Route: 048
  8. VITAMIN D [Concomitant]
     Route: 048
  9. METFORMIN [Concomitant]
  10. GLIMEPIRIDE [Concomitant]

REACTIONS (4)
  - Paralysis [Recovered/Resolved]
  - Pelvic pain [Recovered/Resolved]
  - Gait disturbance [Recovered/Resolved]
  - Tenderness [Recovered/Resolved]
